FAERS Safety Report 4931142-X (Version None)
Quarter: 2006Q1

REPORT INFORMATION
  Report Type: 
  Country: None (occurrence: None)
  Receive Date: 20060302
  Receipt Date: 20051025
  Transmission Date: 20060701
  Serious: Yes (Hospitalization)
  Sender: FDA-Public Use
  Company Number: US-MERCK-0510USA09204

PATIENT
  Age: 57 Year
  Sex: Female
  Weight: 68 kg

DRUGS (12)
  1. VIOXX [Suspect]
     Indication: ARTHRITIS
     Route: 048
     Dates: start: 19990701, end: 20021128
  2. VIOXX [Suspect]
     Route: 048
     Dates: start: 19990701, end: 20021128
  3. VIOXX [Suspect]
     Indication: OSTEOARTHRITIS
     Route: 048
     Dates: start: 19990701, end: 20021128
  4. VIOXX [Suspect]
     Route: 048
     Dates: start: 19990701, end: 20021128
  5. TOPROL-XL [Concomitant]
     Indication: CARDIAC DISORDER
     Route: 065
     Dates: start: 19910101, end: 20030101
  6. LIPITOR [Concomitant]
     Indication: BLOOD CHOLESTEROL INCREASED
     Route: 065
     Dates: start: 19950101, end: 20030101
  7. MOTRIN [Concomitant]
     Indication: PAIN
     Route: 065
     Dates: start: 20000101
  8. ALEVE [Concomitant]
     Indication: PAIN
     Route: 065
     Dates: start: 20000101
  9. TYLENOL (CAPLET) [Concomitant]
     Indication: PAIN
     Route: 065
     Dates: start: 19900101, end: 20040101
  10. ACCUPRIL [Concomitant]
     Indication: HYPERTENSION
     Route: 065
     Dates: start: 19950101, end: 20030101
  11. ISOSORBIDE MONONITRATE [Concomitant]
     Indication: HYPERTENSION
     Route: 065
     Dates: start: 19910101, end: 20030101
  12. PLAVIX [Concomitant]
     Indication: MYOCARDIAL INFARCTION
     Route: 065
     Dates: start: 19980101, end: 20030101

REACTIONS (3)
  - CHEST PAIN [None]
  - DYSPEPSIA [None]
  - MYOCARDIAL INFARCTION [None]
